FAERS Safety Report 9393602 (Version 4)
Quarter: 2014Q3

REPORT INFORMATION
  Report Type: Spontaneous
  Country: US (occurrence: US)
  Receive Date: 20130710
  Receipt Date: 20140717
  Transmission Date: 20150326
  Serious: Yes (Death, Hospitalization)
  Sender: FDA-Public Use
  Company Number: US-GLAXOSMITHKLINE-A1031791A

PATIENT
  Age: 56 Year
  Sex: Male
  Weight: 122.7 kg

DRUGS (1)
  1. AVANDAMET [Suspect]
     Active Substance: METFORMIN HYDROCHLORIDE\ROSIGLITAZONE MALEATE
     Indication: DIABETES MELLITUS
     Route: 048
     Dates: start: 20040917, end: 20090226

REACTIONS (4)
  - Cardiac failure congestive [Unknown]
  - Myocardial infarction [Unknown]
  - Arteriosclerosis coronary artery [Unknown]
  - Cardiogenic shock [Fatal]

NARRATIVE: CASE EVENT DATE: 20060126
